FAERS Safety Report 4978177-9 (Version None)
Quarter: 2006Q2

REPORT INFORMATION
  Report Type: 
  Country: None (occurrence: None)
  Receive Date: 20060414
  Receipt Date: 20060407
  Transmission Date: 20061013
  Serious: Yes (Death, Other)
  Sender: FDA-Public Use
  Company Number: 163-21880-06030102

PATIENT
  Age: 70 Year
  Sex: Male

DRUGS (14)
  1. REVLIMID [Suspect]
     Indication: MYELODYSPLASTIC SYNDROME
     Dosage: 10 MG, QD, ORAL
     Route: 048
     Dates: start: 20060126, end: 20060205
  2. COREG [Concomitant]
  3. ALLOPURINOL [Concomitant]
  4. KLONOPIN [Concomitant]
  5. LASIX [Concomitant]
  6. XANAX [Concomitant]
  7. ALBUTEROL [Concomitant]
  8. PRILOSEC [Concomitant]
  9. ALTACE [Concomitant]
  10. ADVAIR DISKUS 100/50 [Concomitant]
  11. INSULIN [Concomitant]
  12. LEXAPRO [Concomitant]
  13. VICODIN [Concomitant]
  14. ISOSORBIDE MONONITRATE [Concomitant]

REACTIONS (4)
  - CARDIO-RESPIRATORY ARREST [None]
  - DISEASE PROGRESSION [None]
  - MYELODYSPLASTIC SYNDROME [None]
  - RASH [None]
